FAERS Safety Report 14900511 (Version 1)
Quarter: 2018Q2

REPORT INFORMATION
  Report Type: Spontaneous
  Country: US (occurrence: US)
  Receive Date: 20180427
  Receipt Date: 20180427
  Transmission Date: 20180711
  Serious: Yes (Disabling)
  Sender: FDA-Public Use
  Company Number: None

PATIENT
  Age: 23 Year
  Sex: Female
  Weight: 81 kg

DRUGS (4)
  1. NEXPLANON [Suspect]
     Active Substance: ETONOGESTREL
     Indication: CONTRACEPTION
     Dosage: ?          QUANTITY:1 IMPLANT;OTHER FREQUENCY:3 YEARS;?
     Route: 058
     Dates: start: 20160316, end: 20180326
  2. MYDAYIS [Concomitant]
     Active Substance: AMPHETAMINE ASPARTATE\AMPHETAMINE SULFATE\DEXTROAMPHETAMINE SACCHARATE\DEXTROAMPHETAMINE SULFATE
  3. LUNESTA [Concomitant]
     Active Substance: ESZOPICLONE
  4. NUVARING [Concomitant]
     Active Substance: ETHINYL ESTRADIOL\ETONOGESTREL

REACTIONS (8)
  - Menorrhagia [None]
  - Affective disorder [None]
  - Educational problem [None]
  - Loss of personal independence in daily activities [None]
  - Crying [None]
  - Disturbance in attention [None]
  - Irritability [None]
  - Fatigue [None]

NARRATIVE: CASE EVENT DATE: 20180208
